FAERS Safety Report 8269494-8 (Version None)
Quarter: 2012Q2

REPORT INFORMATION
  Report Type: 
  Country: None (occurrence: None)
  Receive Date: 20120409
  Receipt Date: 20110523
  Transmission Date: 20120825
  Serious: Yes (Hospitalization, Other)
  Sender: FDA-Public Use
  Company Number: PHEH2011US01739

PATIENT
  Sex: Female
  Weight: 72.562 kg

DRUGS (5)
  1. VITAMIN D [Concomitant]
     Dosage: 400 IU, UNK
  2. GILENYA [Suspect]
     Indication: MULTIPLE SCLEROSIS
     Dosage: 0.5 MG, QD
     Route: 048
     Dates: start: 20110509
  3. HYZAAR [Concomitant]
     Dosage: UNK UKN, UNK
  4. ESTRADERM [Concomitant]
     Dosage: 0.1 MG, UNK
  5. RITALIN [Concomitant]
     Dosage: 5 MG, UNK

REACTIONS (15)
  - PAIN [None]
  - CHEST DISCOMFORT [None]
  - LYMPHOCYTE COUNT DECREASED [None]
  - DYSPNOEA [None]
  - MULTIPLE SCLEROSIS RELAPSE [None]
  - HYPOAESTHESIA [None]
  - GAIT DISTURBANCE [None]
  - MICTURITION DISORDER [None]
  - OROPHARYNGEAL PAIN [None]
  - NEUTROPHIL COUNT INCREASED [None]
  - CARDIAC DISORDER [None]
  - BLOOD PRESSURE INCREASED [None]
  - ABDOMINAL PAIN [None]
  - VITAMIN D DEFICIENCY [None]
  - PLATELET COUNT INCREASED [None]
